FAERS Safety Report 15820385 (Version 1)
Quarter: 2018Q4

REPORT INFORMATION
  Report Type: Spontaneous
  Country: US (occurrence: US)
  Receive Date: 20181217
  Receipt Date: 20181217
  Transmission Date: 20190205
  Serious: Yes (Hospitalization)
  Sender: FDA-Public Use
  Company Number: None

PATIENT
  Age: 69 Year
  Sex: Female
  Weight: 66.8 kg

DRUGS (1)
  1. NALOXEGOL OXALATE. [Suspect]
     Active Substance: NALOXEGOL OXALATE
     Dates: end: 20181205

REACTIONS (4)
  - Inflammatory bowel disease [None]
  - Diverticulitis [None]
  - Pancytopenia [None]
  - Abdominal pain [None]

NARRATIVE: CASE EVENT DATE: 20181205
